FAERS Safety Report 16696834 (Version 1)
Quarter: 2019Q3

REPORT INFORMATION
  Report Type: Spontaneous
  Country: US (occurrence: US)
  Receive Date: 20190813
  Receipt Date: 20190813
  Transmission Date: 20191004
  Serious: No
  Sender: FDA-Public Use
  Company Number: US-LEADING PHARMA, LLC-2073078

PATIENT
  Age: 81 Year
  Sex: Female

DRUGS (6)
  1. PROPRANOLOL [Concomitant]
     Active Substance: PROPRANOLOL HYDROCHLORIDE
  2. METFORMIN [Concomitant]
     Active Substance: METFORMIN HYDROCHLORIDE
  3. CALCIUM SUPPLEMENT [Concomitant]
     Active Substance: CALCIUM
  4. VITAMIN B12 SUPPLEMENT [Concomitant]
  5. BIOTIN VITAMIN [Concomitant]
  6. LORAZEPAM. [Suspect]
     Active Substance: LORAZEPAM
     Indication: ANXIETY
     Dates: start: 20190605

REACTIONS (3)
  - Feeling jittery [Not Recovered/Not Resolved]
  - Anhedonia [Not Recovered/Not Resolved]
  - Tremor [Not Recovered/Not Resolved]
